FAERS Safety Report 5738753-2 (Version None)
Quarter: 2008Q2

REPORT INFORMATION
  Report Type: 
  Country: None (occurrence: None)
  Receive Date: 20080515
  Receipt Date: 20080505
  Transmission Date: 20081010
  Serious: Yes (Death)
  Sender: FDA-Public Use
  Company Number: US-AMGEN-US277758

PATIENT
  Sex: Male
  Weight: 45.4 kg

DRUGS (5)
  1. PROCRIT [Suspect]
     Indication: MYELODYSPLASTIC SYNDROME
     Route: 058
     Dates: start: 20060801, end: 20080310
  2. LISINOPRIL [Concomitant]
  3. COREG [Concomitant]
  4. DIGOXIN [Concomitant]
     Dates: start: 20051201, end: 20071201
  5. CELEBREX [Concomitant]
     Dates: start: 20070901, end: 20071201

REACTIONS (5)
  - CARDIAC FAILURE CONGESTIVE [None]
  - FALL [None]
  - PELVIC FRACTURE [None]
  - RIB FRACTURE [None]
  - UROSEPSIS [None]
